FAERS Safety Report 13344051 (Version 1)
Quarter: 2017Q1

REPORT INFORMATION
  Report Type: Spontaneous
  Country: IN (occurrence: IN)
  Receive Date: 20170316
  Receipt Date: 20170316
  Transmission Date: 20170428
  Serious: Yes (Other)
  Sender: FDA-Public Use
  Company Number: IN-MAYNE PHARMA-2017MYN000405

PATIENT

DRUGS (2)
  1. METHYLPHENIDATE. [Suspect]
     Active Substance: METHYLPHENIDATE
     Indication: ATTENTION DEFICIT/HYPERACTIVITY DISORDER
  2. METHYLPHENIDATE. [Suspect]
     Active Substance: METHYLPHENIDATE
     Indication: DEPRESSION
     Dosage: 20 MG, QD

REACTIONS (1)
  - Obsessive-compulsive symptom [Recovering/Resolving]
